FAERS Safety Report 12652428 (Version 6)
Quarter: 2017Q1

REPORT INFORMATION
  Report Type: Spontaneous
  Country: US (occurrence: US)
  Receive Date: 20160815
  Receipt Date: 20170206
  Transmission Date: 20170428
  Serious: No
  Sender: FDA-Public Use
  Company Number: US-PFIZER INC-2016368949

PATIENT
  Age: 85 Year
  Sex: Male
  Weight: 107.3 kg

DRUGS (15)
  1. XALKORI [Suspect]
     Active Substance: CRIZOTINIB
     Indication: LUNG CARCINOMA CELL TYPE UNSPECIFIED RECURRENT
     Dosage: 250 MG, 2X/DAY
     Route: 048
     Dates: start: 20160723
  2. ZOFRAN [Concomitant]
     Active Substance: ONDANSETRON HYDROCHLORIDE
     Dosage: 8 MG, UNK
  3. XALKORI [Suspect]
     Active Substance: CRIZOTINIB
     Indication: LUNG CANCER METASTATIC
     Dosage: 250 MG, 2X/DAY
     Dates: start: 20160607, end: 20160723
  4. PROSCAR [Concomitant]
     Active Substance: FINASTERIDE
     Dosage: 5 MG, UNK
  5. XALKORI [Suspect]
     Active Substance: CRIZOTINIB
     Dosage: 250 MG, 2X/DAY
     Route: 048
     Dates: start: 20160723
  6. XALKORI [Suspect]
     Active Substance: CRIZOTINIB
     Dosage: UNK UNK, DAILY
     Route: 048
     Dates: start: 20170109
  7. NEURONTIN [Concomitant]
     Active Substance: GABAPENTIN
     Indication: POST HERPETIC NEURALGIA
     Dosage: 300 MG, UNK
  8. ALIMTA [Concomitant]
     Active Substance: PEMETREXED DISODIUM
     Dosage: 500 MG/M2, CYCLIC(500 MG/M2 X 4 CYCLES V6.0)
  9. XALKORI [Suspect]
     Active Substance: CRIZOTINIB
     Dosage: 1 DF, DAILY
     Route: 048
     Dates: start: 20161107
  10. RAMIPRIL. [Concomitant]
     Active Substance: RAMIPRIL
     Dosage: 5 MG, UNK
  11. CARBOPLATIN. [Concomitant]
     Active Substance: CARBOPLATIN
     Dosage: UNK
  12. FOLIC ACID. [Concomitant]
     Active Substance: FOLIC ACID
     Dosage: 400 MG, UNK
  13. XALKORI [Suspect]
     Active Substance: CRIZOTINIB
     Indication: DIFFUSE LARGE B-CELL LYMPHOMA
     Dosage: 250 MG, 2X/DAY
     Route: 048
     Dates: start: 20160723
  14. XALKORI [Suspect]
     Active Substance: CRIZOTINIB
     Dosage: 250 MG, DAILY
     Route: 048
     Dates: start: 20161020
  15. FLOMAX [Concomitant]
     Active Substance: TAMSULOSIN HYDROCHLORIDE
     Dosage: 0.4 MG, UNK

REACTIONS (8)
  - Nausea [Unknown]
  - Constipation [Unknown]
  - Swelling [Not Recovered/Not Resolved]
  - Pleural effusion [Unknown]
  - Diarrhoea [Unknown]
  - Liver function test abnormal [Recovered/Resolved]
  - Herpes zoster [Unknown]
  - Neuropathy peripheral [Unknown]

NARRATIVE: CASE EVENT DATE: 201607
